FAERS Safety Report 22128030 (Version 1)
Quarter: 2023Q1

REPORT INFORMATION
  Report Type: Spontaneous
  Country: US (occurrence: US)
  Receive Date: 20230323
  Receipt Date: 20230323
  Transmission Date: 20230418
  Serious: No
  Sender: FDA-Public Use
  Company Number: US-ALLERGAN-2239993US

PATIENT
  Age: 48 Year
  Sex: Male

DRUGS (1)
  1. LINZESS [Suspect]
     Active Substance: LINACLOTIDE
     Indication: Crohn^s disease

REACTIONS (3)
  - Off label use [Unknown]
  - Abdominal distension [Unknown]
  - Diarrhoea [Unknown]
